FAERS Safety Report 25996486 (Version 1)
Quarter: 2025Q4

REPORT INFORMATION
  Report Type: Spontaneous
  Country: TR (occurrence: TR)
  Receive Date: 20251104
  Receipt Date: 20251104
  Transmission Date: 20260118
  Serious: Yes (Other)
  Sender: ROCHE
  Company Number: TR-ROCHE-10000419182

PATIENT
  Age: 68 Year
  Sex: Male

DRUGS (2)
  1. ATEZOLIZUMAB [Suspect]
     Active Substance: ATEZOLIZUMAB
     Indication: Non-small cell lung cancer
     Route: 042
     Dates: start: 20200826
  2. DENOSUMAB [Suspect]
     Active Substance: DENOSUMAB
     Indication: Non-small cell lung cancer
     Route: 065

REACTIONS (5)
  - Disease progression [Unknown]
  - Metastases to central nervous system [Unknown]
  - Metastases to lymph nodes [Unknown]
  - Metastases to bone [Unknown]
  - Metastases to liver [Unknown]

NARRATIVE: CASE EVENT DATE: 20210527
